FAERS Safety Report 6143452-1 (Version None)
Quarter: 2009Q2

REPORT INFORMATION
  Report Type: 
  Country: None (occurrence: None)
  Receive Date: 20090403
  Receipt Date: 20090326
  Transmission Date: 20091009
  Serious: Yes (Hospitalization, Other)
  Sender: FDA-Public Use
  Company Number: PHHY2009AU11483

PATIENT
  Sex: Female

DRUGS (2)
  1. TEGRETOL [Suspect]
     Indication: FACIAL PAIN
     Dosage: 100 MG/DAY
  2. TEGRETOL [Suspect]
     Dosage: 50 MG, UNK

REACTIONS (5)
  - ABDOMINAL PAIN UPPER [None]
  - DEPRESSION [None]
  - DRY MOUTH [None]
  - GAIT DISTURBANCE [None]
  - SURGERY [None]
